FAERS Safety Report 7650241-5 (Version None)
Quarter: 2011Q3

REPORT INFORMATION
  Report Type: 
  Country: None (occurrence: None)
  Receive Date: 20110719
  Receipt Date: 20110208
  Transmission Date: 20111222
  Serious: Yes (Hospitalization)
  Sender: FDA-Public Use
  Company Number: 163-21880-10080726

PATIENT
  Age: 70 Year
  Sex: Male
  Weight: 72.9 kg

DRUGS (14)
  1. CEFEPIME (CEFEPIME) (UNKNOWN) [Concomitant]
  2. ONDANSETRON (ONDANSETRON) (TABLETS) [Concomitant]
  3. VISCOUS LIDOCAINE (LIDOCAINE HYDROCHLORIDE) (UNKNOWN) [Concomitant]
  4. VIDAZA [Suspect]
     Indication: ACUTE MYELOID LEUKAEMIA
     Dosage: 75 MG/M2, QD, SC ; 151 MG, QD, SC
     Route: 057
     Dates: start: 20100625, end: 20100701
  5. VIDAZA [Suspect]
     Indication: ACUTE MYELOID LEUKAEMIA
     Dosage: 75 MG/M2, QD, SC ; 151 MG, QD, SC
     Route: 057
     Dates: start: 20100917, end: 20100923
  6. BLOOD TRANSFUSION (BLOOD AND RELATED PRODUCTS) (INJECTION FOR INFUSION [Concomitant]
  7. LEVAQUIN (LEVOFLOXACIN) (UNKNOWN) [Concomitant]
  8. AMOXICILLIN (AMOXICILLIN) (TABLETS) [Concomitant]
  9. CIPROFLOXACIN (CIPROFLOXACIN) (TABLETS) [Concomitant]
  10. FLUCONAZOLE (FLUCONAZOLE) (TABLETS) [Concomitant]
  11. REVLIMID [Suspect]
     Indication: ACUTE MYELOID LEUKAEMIA
     Dosage: 5 MG, QOD, PO ; 5 MG, QD, PO
     Route: 048
     Dates: start: 20100702, end: 20100722
  12. REVLIMID [Suspect]
     Indication: ACUTE MYELOID LEUKAEMIA
     Dosage: 5 MG, QOD, PO ; 5 MG, QD, PO
     Route: 048
     Dates: start: 20100924, end: 20101014
  13. AUGMENTIN '125' [Concomitant]
  14. ROCEPHINE (CEFTRIAXONE) (UNKNOWN) [Concomitant]

REACTIONS (2)
  - FEBRILE NEUTROPENIA [None]
  - PNEUMONIA [None]
